FAERS Safety Report 11396842 (Version 1)
Quarter: 2015Q3

REPORT INFORMATION
  Report Type: Spontaneous
  Country: US (occurrence: US)
  Receive Date: 20150819
  Receipt Date: 20150819
  Transmission Date: 20151125
  Serious: Yes (Other)
  Sender: FDA-Public Use
  Company Number: US-SA-2015SA121970

PATIENT
  Age: 51 Year
  Sex: Female

DRUGS (2)
  1. LANTUS SOLOSTAR [Suspect]
     Active Substance: INSULIN GLARGINE
     Dosage: DOSE:65 UNIT(S)
     Route: 065
     Dates: start: 20141208
  2. SOLOSTAR [Concomitant]
     Active Substance: DEVICE
     Dates: start: 20141208

REACTIONS (2)
  - Blindness [Unknown]
  - Visual acuity reduced [Unknown]
